FAERS Safety Report 24712817 (Version 7)
Quarter: 2025Q2

REPORT INFORMATION
  Report Type: Spontaneous
  Country: ES (occurrence: ES)
  Receive Date: 20241209
  Receipt Date: 20250514
  Transmission Date: 20250717
  Serious: Yes (Life-Threatening, Hospitalization, Other)
  Sender: ELI LILLY AND COMPANY
  Company Number: ES-HIKMA PHARMACEUTICALS USA INC.-ES-H14001-24-10834

PATIENT
  Age: 63 Year
  Sex: Female
  Weight: 78.2 kg

DRUGS (36)
  1. PEMETREXED [Suspect]
     Active Substance: PEMETREXED
     Indication: Non-small cell lung cancer
     Route: 042
     Dates: start: 20241024, end: 20241024
  2. PEMETREXED [Suspect]
     Active Substance: PEMETREXED
     Route: 042
     Dates: start: 20241115, end: 20241115
  3. PEMETREXED [Suspect]
     Active Substance: PEMETREXED
     Route: 042
     Dates: start: 20241205, end: 20241205
  4. PEMETREXED [Suspect]
     Active Substance: PEMETREXED
     Route: 042
     Dates: start: 20250403
  5. CARBOPLATIN [Suspect]
     Active Substance: CARBOPLATIN
     Indication: Non-small cell lung cancer
     Route: 042
     Dates: start: 20241024, end: 20241024
  6. CARBOPLATIN [Suspect]
     Active Substance: CARBOPLATIN
     Route: 042
     Dates: start: 20241115, end: 20241115
  7. CARBOPLATIN [Suspect]
     Active Substance: CARBOPLATIN
     Route: 042
     Dates: start: 20241205, end: 20241205
  8. CARBOPLATIN [Suspect]
     Active Substance: CARBOPLATIN
     Route: 042
     Dates: start: 20250403
  9. VUDALIMAB [Suspect]
     Active Substance: VUDALIMAB
     Indication: Non-small cell lung cancer
     Route: 042
     Dates: start: 20241024, end: 20241024
  10. VUDALIMAB [Suspect]
     Active Substance: VUDALIMAB
     Route: 042
     Dates: start: 20241115, end: 20241115
  11. VUDALIMAB [Suspect]
     Active Substance: VUDALIMAB
     Route: 042
     Dates: start: 20241205, end: 20241205
  12. VUDALIMAB [Suspect]
     Active Substance: VUDALIMAB
     Route: 042
     Dates: start: 20250403
  13. FENTANYL [Concomitant]
     Active Substance: FENTANYL
     Indication: Product used for unknown indication
     Dates: start: 20241018
  14. MORPHINE [Concomitant]
     Active Substance: MORPHINE
     Indication: Product used for unknown indication
     Dates: start: 2024
  15. LORAZEPAM [Concomitant]
     Active Substance: LORAZEPAM
     Indication: Product used for unknown indication
     Dates: start: 20241005
  16. MYCOSTATIN [Concomitant]
     Active Substance: NYSTATIN
     Indication: Product used for unknown indication
     Dates: start: 20241024
  17. SIMVASTATIN [Concomitant]
     Active Substance: SIMVASTATIN
     Indication: Product used for unknown indication
     Dates: start: 2023
  18. METAMIZOLE MAGNESIUM [Concomitant]
     Active Substance: METAMIZOLE MAGNESIUM
     Indication: Product used for unknown indication
     Dates: start: 20240708
  19. ENALAPRIL [Concomitant]
     Active Substance: ENALAPRIL
     Indication: Product used for unknown indication
  20. FOLI DOCE [Concomitant]
     Indication: Supplementation therapy
     Dates: start: 20241008, end: 20241014
  21. DENOSUMAB [Concomitant]
     Active Substance: DENOSUMAB
     Indication: Product used for unknown indication
     Dates: start: 20241009
  22. IRON [Concomitant]
     Active Substance: IRON
     Indication: Product used for unknown indication
     Dates: start: 20241009, end: 20241009
  23. CYANOCOBALAMIN [Concomitant]
     Active Substance: CYANOCOBALAMIN
     Indication: Supplementation therapy
     Dates: start: 20241011
  24. FENTANYL CITRATE [Concomitant]
     Active Substance: FENTANYL CITRATE
     Indication: Product used for unknown indication
     Dates: start: 20241017
  25. LYRICA [Concomitant]
     Active Substance: PREGABALIN
     Indication: Product used for unknown indication
     Dates: start: 20241024
  26. METOCLOPRAMIDE [Concomitant]
     Active Substance: METOCLOPRAMIDE
     Indication: Product used for unknown indication
     Dates: start: 20241024
  27. DEXAMETHASONE [Concomitant]
     Active Substance: DEXAMETHASONE
     Indication: Product used for unknown indication
     Dates: start: 20241024
  28. PREGABALIN [Concomitant]
     Active Substance: PREGABALIN
     Indication: Product used for unknown indication
     Dates: start: 20241017
  29. OMEPRAZOLE [Concomitant]
     Active Substance: OMEPRAZOLE
     Indication: Product used for unknown indication
     Dates: start: 20241114
  30. LORATADINE [Concomitant]
     Active Substance: LORATADINE
     Indication: Product used for unknown indication
     Dates: start: 20241114
  31. DEXAMETHASONE [Concomitant]
     Active Substance: DEXAMETHASONE
     Indication: Product used for unknown indication
     Dates: start: 20241125
  32. LEXXEMA [Concomitant]
     Indication: Product used for unknown indication
     Dates: start: 20241127
  33. POLARAMINE [Concomitant]
     Active Substance: DEXCHLORPHENIRAMINE MALEATE
     Indication: Product used for unknown indication
     Dates: start: 20241130, end: 20241204
  34. AMOXICILLIN\CLAVULANIC ACID [Concomitant]
     Active Substance: AMOXICILLIN\CLAVULANIC ACID
     Indication: Product used for unknown indication
     Dates: start: 20241206, end: 20241213
  35. TRIAMCINOLONE [Concomitant]
     Active Substance: TRIAMCINOLONE
     Indication: Product used for unknown indication
     Route: 065
     Dates: start: 20241210, end: 20241223
  36. DEXERYL [GLYCEROL;PARAFFIN, LIQUID;WHITE SOFT [Concomitant]
     Indication: Product used for unknown indication
     Dates: start: 20241211

REACTIONS (18)
  - Pneumonia [Recovered/Resolved]
  - Flank pain [Unknown]
  - Chromaturia [Unknown]
  - C-reactive protein increased [Unknown]
  - Dyspepsia [Recovered/Resolved]
  - Urinary tract infection [Not Recovered/Not Resolved]
  - Abdominal pain lower [Unknown]
  - Large intestine infection [Recovered/Resolved]
  - Vomiting [Recovered/Resolved]
  - Respiratory tract infection [Not Recovered/Not Resolved]
  - Hypoxia [Unknown]
  - C-reactive protein increased [Unknown]
  - Staphylococcus test positive [Unknown]
  - Somnolence [Unknown]
  - Xeroderma [Unknown]
  - Immune-mediated lung disease [Unknown]
  - Autoimmune lung disease [Unknown]
  - Bacterial test positive [Unknown]

NARRATIVE: CASE EVENT DATE: 20241027
